FAERS Safety Report 5689265-6 (Version None)
Quarter: 2008Q1

REPORT INFORMATION
  Report Type: 
  Country: None (occurrence: None)
  Receive Date: 20080331
  Receipt Date: 20080319
  Transmission Date: 20080703
  Serious: Yes (Hospitalization)
  Sender: FDA-Public Use
  Company Number: US-ELI_LILLY_AND_COMPANY-US200801003019

PATIENT
  Sex: Female

DRUGS (19)
  1. FORTEO [Suspect]
     Indication: OSTEOPOROSIS
     Dosage: 20 UG, DAILY (1/D)
     Dates: start: 20071231, end: 20080127
  2. FORTEO [Suspect]
     Dosage: UNK, UNK
     Dates: start: 20080101
  3. EVISTA [Suspect]
  4. COUMADIN [Concomitant]
     Dosage: 5 MG, DAILY (1/D)
  5. ASPIRIN [Concomitant]
     Dosage: 81 MG, DAILY (1/D)
  6. DIOVAN [Concomitant]
     Dosage: 160 MG, DAILY (1/D)
  7. VYTORIN [Concomitant]
     Dosage: UNK, DAILY (1/D)
  8. BIOTENE [Concomitant]
     Dosage: 1000 UG, DAILY (1/D)
  9. CALCIUM [Concomitant]
  10. CALTRATE + D [Concomitant]
     Dosage: UNK, 2/D
  11. CARTEOL [Concomitant]
  12. ISOSORBIDE MONONITRATE [Concomitant]
     Dosage: 15 MG, DAILY (1/D)
  13. VITAMIN D [Concomitant]
     Dosage: 400 U, DAILY (1/D)
  14. COREG [Concomitant]
     Dosage: 6.5 MG, 2/D
     Dates: end: 20080101
  15. FUROSEMIDE [Concomitant]
     Dosage: 20 MG, 2/D
  16. OMACOR [Concomitant]
     Dosage: 1 G, 2/D
  17. PARAFON FORTE DSC [Concomitant]
     Dosage: 500 MG, 4/D
  18. TRAMADOL HCL [Concomitant]
     Dosage: 50 MG, AS NEEDED
  19. BONIVA [Concomitant]

REACTIONS (4)
  - ATRIAL FIBRILLATION [None]
  - INJECTION SITE PRURITUS [None]
  - INJECTION SITE REACTION [None]
  - NAUSEA [None]
